FAERS Safety Report 8424115-6 (Version None)
Quarter: 2012Q2

REPORT INFORMATION
  Report Type: 
  Country: None (occurrence: None)
  Receive Date: 20120608
  Receipt Date: 20110729
  Transmission Date: 20120825
  Serious: No
  Sender: FDA-Public Use
  Company Number: US-ASTRAZENECA-2008UW09384

PATIENT
  Age: 71 Year
  Sex: Female

DRUGS (4)
  1. PULMICORT [Suspect]
     Route: 055
     Dates: start: 19990101
  2. PULMICORT [Suspect]
     Route: 055
  3. PULMICORT [Suspect]
     Route: 055
  4. PERFOROMIST [Concomitant]

REACTIONS (2)
  - WRONG TECHNIQUE IN DRUG USAGE PROCESS [None]
  - NASOPHARYNGITIS [None]
